FAERS Safety Report 5488502-0 (Version None)
Quarter: 2007Q4

REPORT INFORMATION
  Report Type: 
  Country: None (occurrence: None)
  Receive Date: 20071017
  Receipt Date: 20071002
  Transmission Date: 20080405
  Serious: Yes (Hospitalization)
  Sender: FDA-Public Use
  Company Number: US-ELI_LILLY_AND_COMPANY-US200708005949

PATIENT
  Sex: Male
  Weight: 88.5 kg

DRUGS (19)
  1. GEMCITABINE HCL [Suspect]
     Indication: RENAL CANCER METASTATIC
     Dosage: 1000 MG/M2, DAYS 1 AND 8
     Route: 042
     Dates: start: 20070508, end: 20070814
  2. GEMCITABINE HCL [Suspect]
     Dosage: 750 MG/M2, UNK
     Route: 042
     Dates: start: 20070814, end: 20070814
  3. *SUNITINIB MALATE [Suspect]
     Indication: RENAL CANCER METASTATIC
     Dosage: 50 MG, DAILY (1/D)
     Route: 048
     Dates: start: 20070509, end: 20070814
  4. *SUNITINIB MALATE [Suspect]
     Dosage: 37.5 MG, DAILY (1/D)
     Route: 048
     Dates: start: 20070814, end: 20070814
  5. ATIVAN [Concomitant]
     Indication: INSOMNIA
     Dosage: 1 MG, AS NEEDED
  6. PERCOCET [Concomitant]
     Indication: PAIN
     Dosage: 2 D/F, AS NEEDED
  7. ASCORBIC ACID [Concomitant]
     Indication: SUPPLEMENTATION THERAPY
     Dosage: 500 MG, DAILY (1/D)
  8. CYANOCOBALAMIN [Concomitant]
     Indication: SUPPLEMENTATION THERAPY
     Dosage: 100 UG, DAILY (1/D)
  9. FERROUS SULFATE TAB [Concomitant]
     Indication: SUPPLEMENTATION THERAPY
     Dosage: 325 MG, DAILY (1/D)
  10. TYLENOL                                 /SCH/ [Concomitant]
     Indication: PYREXIA
     Dosage: 500 MG, DAILY (1/D)
  11. PROCRIT [Concomitant]
     Indication: HAEMOGLOBIN DECREASED
     Dosage: 40000 U, UNK
     Dates: start: 20070412
  12. SENOKOT [Concomitant]
     Indication: CONSTIPATION
     Dosage: 2 D/F, AS NEEDED
     Dates: start: 20070523
  13. IBUPROFEN [Concomitant]
     Indication: PAIN
     Dosage: 200 MG, EACH EVENING
     Dates: start: 20070401
  14. TUMS [Concomitant]
     Indication: GASTROOESOPHAGEAL REFLUX DISEASE
     Dosage: UNK, AS NEEDED
     Dates: start: 20070515
  15. LOTRIMIN [Concomitant]
     Indication: RASH
     Dates: start: 20070718
  16. LASIX [Concomitant]
     Dosage: 20 MG, DAILY (1/D)
     Dates: start: 20070611, end: 20070814
  17. CENTRUM [Concomitant]
     Dosage: 1 UNK, DAILY (1/D)
     Dates: start: 20070724
  18. COLACE [Concomitant]
     Indication: CONSTIPATION
     Dosage: 1 D/F, AS NEEDED
     Dates: start: 20070523
  19. NORVASC [Concomitant]
     Indication: HYPERTENSION
     Dosage: 5 MG, UNK
     Dates: start: 20070815

REACTIONS (4)
  - BLOOD PRESSURE INCREASED [None]
  - LEUKOENCEPHALOPATHY [None]
  - MENTAL STATUS CHANGES [None]
  - METABOLIC DISORDER [None]
